FAERS Safety Report 5520783-7 (Version None)
Quarter: 2007Q4

REPORT INFORMATION
  Report Type: 
  Country: None (occurrence: None)
  Receive Date: 20071115
  Receipt Date: 20071115
  Transmission Date: 20080405
  Serious: No
  Sender: FDA-Public Use
  Company Number: None

PATIENT
  Age: 41 Year
  Sex: Male
  Weight: 122.4712 kg

DRUGS (1)
  1. CHANTIX [Suspect]
     Indication: SMOKING CESSATION THERAPY
     Dosage: 1 TAB BID PO
     Route: 048
     Dates: start: 20070801, end: 20071101

REACTIONS (3)
  - ARTHRALGIA [None]
  - BURSITIS [None]
  - MUSCULOSKELETAL PAIN [None]
